FAERS Safety Report 4711692-1 (Version None)
Quarter: 2005Q2

REPORT INFORMATION
  Report Type: 
  Country: None (occurrence: None)
  Receive Date: 20050629
  Receipt Date: 20050329
  Transmission Date: 20051028
  Serious: No
  Sender: FDA-Public Use
  Company Number: 05P-163-0295476-00

PATIENT
  Age: 78 Year
  Sex: Male
  Weight: 92.9874 kg

DRUGS (9)
  1. HUMIRA [Suspect]
     Indication: RHEUMATOID ARTHRITIS
     Dosage: 40 MG,  1 IN 2 WK, SUBCUTANEOUS
     Route: 058
     Dates: start: 20050101
  2. LEFLUNOMIDE [Concomitant]
  3. SULFASALAZINE [Concomitant]
  4. HYDROCHLOROTHIAZIDE [Concomitant]
  5. HYDROXYCHLOROQUINE SULFATE [Concomitant]
  6. MULTI-VITAMINS [Concomitant]
  7. ESOMEPRAZOLE [Concomitant]
  8. GINKGO BILOBA [Concomitant]
  9. UBIDECARENONE [Concomitant]

REACTIONS (3)
  - COUGH [None]
  - INCREASED UPPER AIRWAY SECRETION [None]
  - RESPIRATORY TRACT CONGESTION [None]
